FAERS Safety Report 7282696-2 (Version None)
Quarter: 2011Q1

REPORT INFORMATION
  Report Type: 
  Country: None (occurrence: None)
  Receive Date: 20110209
  Receipt Date: 20110128
  Transmission Date: 20110831
  Serious: Yes (Other)
  Sender: FDA-Public Use
  Company Number: JP-SANOFI-AVENTIS-2011SA007005

PATIENT
  Sex: Male

DRUGS (1)
  1. MYSLEE [Suspect]
     Route: 048

REACTIONS (2)
  - HOMICIDE [None]
  - OVERDOSE [None]
